FAERS Safety Report 11917342 (Version 1)
Quarter: 2016Q1

REPORT INFORMATION
  Report Type: Report from Study
  Country: US (occurrence: US)
  Receive Date: 20160114
  Receipt Date: 20160114
  Transmission Date: 20160526
  Serious: Yes (Other)
  Sender: FDA-Public Use
  Company Number: US-AMGEN-USASL2016002863

PATIENT
  Age: 47 Year
  Sex: Female

DRUGS (1)
  1. ENBREL [Suspect]
     Active Substance: ETANERCEPT
     Indication: PSORIASIS
     Dosage: 50 MG, 2 TIMES/WK
     Route: 065
     Dates: start: 20151019

REACTIONS (7)
  - Injection site mass [Unknown]
  - Injection site pain [Unknown]
  - Bipolar disorder [Unknown]
  - Injection site haemorrhage [Unknown]
  - Cervical vertebral fracture [Unknown]
  - Emotional disorder [Unknown]
  - Road traffic accident [Unknown]

NARRATIVE: CASE EVENT DATE: 201511
